FAERS Safety Report 9589980 (Version 2)
Quarter: 2013Q4

REPORT INFORMATION
  Report Type: Spontaneous
  Country: US (occurrence: US)
  Receive Date: 20131003
  Receipt Date: 20131003
  Transmission Date: 20140711
  Serious: No
  Sender: FDA-Public Use
  Company Number: US-AMGEN-USASP2012064014

PATIENT
  Age: 59 Year
  Sex: Female
  Weight: 77.1 kg

DRUGS (11)
  1. ENBREL [Suspect]
     Indication: RHEUMATOID ARTHRITIS
     Dosage: 50 MG, QWK
     Route: 058
  2. FOLIC ACID [Concomitant]
     Dosage: UNK
  3. METHOTREXATE [Concomitant]
     Dosage: 2.5 MG, UNK
  4. FLEXERIL                           /00428402/ [Concomitant]
     Dosage: 5 MG, UNK
  5. VYTORIN [Concomitant]
     Dosage: 10-20 MG, UNK
  6. NAPROSYN                           /00256201/ [Concomitant]
     Dosage: 250 MG, QD
  7. VITAMIN C                          /00008004/ [Concomitant]
     Dosage: 500 MG, UNK
  8. VITAMIN D                          /00107901/ [Concomitant]
     Dosage: 400 UNK, UNK
  9. CALCIUM 500+D [Concomitant]
     Dosage: 500 UNK, UNK
  10. ACIDOPHILUS [Concomitant]
     Dosage: 10 MG, UNK
  11. ZYRTEC [Concomitant]
     Dosage: 10 MG, UNK

REACTIONS (2)
  - Headache [Unknown]
  - Injection site pain [Unknown]
